FAERS Safety Report 4991499-0 (Version None)
Quarter: 2006Q2

REPORT INFORMATION
  Report Type: 
  Country: None (occurrence: None)
  Receive Date: 20060502
  Receipt Date: 20060421
  Transmission Date: 20061013
  Serious: Yes (Life-Threatening, Hospitalization)
  Sender: FDA-Public Use
  Company Number: FABR-11437

PATIENT
  Age: 63 Year
  Sex: Male
  Weight: 53 kg

DRUGS (1)
  1. FABRAZYME [Suspect]
     Indication: FABRY'S DISEASE
     Dosage: 50 MG Q2WKS IV
     Route: 042
     Dates: start: 20040428

REACTIONS (4)
  - CARDIO-RESPIRATORY ARREST [None]
  - FALL [None]
  - FEMUR FRACTURE [None]
  - VENTRICULAR TACHYCARDIA [None]
